FAERS Safety Report 12838069 (Version 2)
Quarter: 2016Q4

REPORT INFORMATION
  Report Type: Report from Study
  Country: EC (occurrence: EC)
  Receive Date: 20161012
  Receipt Date: 20161024
  Transmission Date: 20170207
  Serious: Yes (Death)
  Sender: FDA-Public Use
  Company Number: EC-ROCHE-1840925

PATIENT
  Sex: Female

DRUGS (1)
  1. HERCEPTIN [Suspect]
     Active Substance: TRASTUZUMAB
     Indication: BREAST CANCER
     Dosage: DOSE: 600 (UNIT NOT REPORTED)
     Route: 065
     Dates: start: 20140715

REACTIONS (3)
  - Generalised oedema [Fatal]
  - Renal failure [Fatal]
  - Cough [Fatal]

NARRATIVE: CASE EVENT DATE: 201608
